FAERS Safety Report 4721852-1 (Version None)
Quarter: 2005Q3

REPORT INFORMATION
  Report Type: 
  Country: None (occurrence: None)
  Receive Date: 20050721
  Receipt Date: 20050503
  Transmission Date: 20060218
  Serious: Yes (Life-Threatening, Hospitalization, Disabling)
  Sender: FDA-Public Use
  Company Number: US-BRISTOL-MYERS SQUIBB COMPANY-12961447

PATIENT
  Age: 70 Year
  Sex: Female

DRUGS (5)
  1. COUMADIN [Suspect]
     Indication: DEEP VEIN THROMBOSIS
     Dosage: 6.5-8.0 MG DEPENDING ON INR; INTERRUPTED AND TEMPORARILY ON LMWH
     Route: 048
     Dates: start: 19970101, end: 20050101
  2. NEXIUM [Concomitant]
  3. NORVASC [Concomitant]
  4. ZANTAC [Concomitant]
     Indication: GASTROOESOPHAGEAL REFLUX DISEASE
  5. INNOHEP [Concomitant]
     Indication: DEEP VEIN THROMBOSIS
     Route: 058

REACTIONS (3)
  - DEEP VEIN THROMBOSIS [None]
  - DRUG RESISTANCE [None]
  - THROMBOSIS [None]
